FAERS Safety Report 6539680-3 (Version None)
Quarter: 2010Q1

REPORT INFORMATION
  Report Type: 
  Country: None (occurrence: None)
  Receive Date: 20100115
  Receipt Date: 20100104
  Transmission Date: 20100710
  Serious: Yes (Hospitalization)
  Sender: FDA-Public Use
  Company Number: US-SANOFI-AVENTIS-2010SA001180

PATIENT
  Age: 63 Year
  Sex: Female

DRUGS (2)
  1. LANTUS [Suspect]
     Dosage: 15 AND 30 UNITS TWICE A DAY - TOTAL 45 UNITS PER DAY
     Route: 058
  2. OPTICLICK [Suspect]

REACTIONS (1)
  - CARDIAC FAILURE CONGESTIVE [None]
